FAERS Safety Report 25124595 (Version 2)
Quarter: 2025Q1

REPORT INFORMATION
  Report Type: Spontaneous
  Country: SG (occurrence: SG)
  Receive Date: 20250326
  Receipt Date: 20250331
  Transmission Date: 20250409
  Serious: Yes (Hospitalization)
  Sender: PFIZER
  Company Number: SG-MLMSERVICE-20250318-PI442746-00306-2

PATIENT
  Age: 30 Year
  Sex: Female

DRUGS (15)
  1. HYDROCORTISONE SODIUM SUCCINATE [Suspect]
     Active Substance: HYDROCORTISONE SODIUM SUCCINATE
     Indication: Immunosuppressant drug therapy
     Dosage: 50 MG, 3X/DAY
     Route: 042
     Dates: start: 202311, end: 2023
  2. METHYLPREDNISOLONE SODIUM SUCCINATE [Suspect]
     Active Substance: METHYLPREDNISOLONE SODIUM SUCCINATE
     Indication: Immunosuppressant drug therapy
     Route: 042
     Dates: start: 20231125, end: 20231125
  3. METHYLPREDNISOLONE SODIUM SUCCINATE [Suspect]
     Active Substance: METHYLPREDNISOLONE SODIUM SUCCINATE
     Route: 042
     Dates: start: 20231126, end: 20231126
  4. TACROLIMUS [Suspect]
     Active Substance: TACROLIMUS
     Indication: Immunosuppressant drug therapy
     Dosage: 0.05 MG/KG, 2X/DAY
     Route: 048
     Dates: start: 20231122, end: 202311
  5. TACROLIMUS [Suspect]
     Active Substance: TACROLIMUS
     Indication: Immunosuppressant drug therapy
     Route: 042
     Dates: start: 2023
  6. PREDNISOLONE [Suspect]
     Active Substance: PREDNISOLONE
     Indication: Immunosuppressant drug therapy
     Dosage: 30 MG, 1X/DAY
     Route: 048
     Dates: start: 2023
  7. AZATHIOPRINE [Suspect]
     Active Substance: AZATHIOPRINE
     Indication: Immunosuppressant drug therapy
     Dosage: 2 MG/KG, 1X/DAY
     Route: 048
     Dates: start: 202311
  8. BASILIXIMAB [Suspect]
     Active Substance: BASILIXIMAB
     Indication: Immunosuppressant drug therapy
     Dates: start: 20231125, end: 20231125
  9. BASILIXIMAB [Suspect]
     Active Substance: BASILIXIMAB
     Dosage: GIVEN ON FOURTH POSTOPERATIVE DAY
     Dates: start: 20231129, end: 20231129
  10. ACYCLOVIR [Concomitant]
     Active Substance: ACYCLOVIR
     Indication: Infection prophylaxis
  11. COTRIMOXAZOLE [Concomitant]
     Active Substance: SULFAMETHOXAZOLE\TRIMETHOPRIM
     Indication: Prophylaxis
     Route: 048
     Dates: start: 2023
  12. ASPIRIN [Concomitant]
     Active Substance: ASPIRIN
     Indication: Prophylaxis
     Dates: start: 2023
  13. FOLIC ACID [Concomitant]
     Active Substance: FOLIC ACID
     Indication: Prophylaxis
     Dates: start: 2023
  14. FERROUS FUMARATE [Concomitant]
     Active Substance: FERROUS FUMARATE
     Indication: Prophylaxis
     Dates: start: 2023
  15. ENOXAPARIN [Concomitant]
     Active Substance: ENOXAPARIN
     Indication: Postoperative thrombosis
     Route: 058
     Dates: start: 2023

REACTIONS (1)
  - Cytomegalovirus infection [Recovering/Resolving]

NARRATIVE: CASE EVENT DATE: 20240101
